FAERS Safety Report 8795477 (Version 2)
Quarter: 2012Q4

REPORT INFORMATION
  Report Type: Report from Study
  Country: US (occurrence: US)
  Receive Date: 20120917
  Receipt Date: 20121001
  Transmission Date: 20130627
  Serious: Yes (Hospitalization)
  Sender: FDA-Public Use
  Company Number: US-PFIZER INC-2012227240

PATIENT
  Age: 36 Year
  Sex: Male

DRUGS (4)
  1. CYTARABINE [Suspect]
     Indication: ACUTE MYELOID LEUKAEMIA
     Dosage: Consolidation: 1000 or 3000 mg (age based dose), cyclic, on days 1, 3, 5
     Route: 042
     Dates: start: 20120330
  2. IDARUBICIN HYDROCHLORIDE [Suspect]
     Indication: ACUTE MYELOID LEUKAEMIA
     Dosage: Induction: 12 mg/m2 (23 mg), cyclic, on days 1, 2, 3
     Route: 042
     Dates: start: 20120330, end: 20120401
  3. SPRYCEL [Suspect]
     Indication: ACUTE MYELOID LEUKAEMIA
     Dosage: Consolidation: 100 mg, cyclic, on days 6-26 or 13-33 as per protocol
     Route: 048
     Dates: start: 20120330
  4. DAUNORUBICIN [Suspect]
     Indication: ACUTE MYELOID LEUKAEMIA
     Dosage: Induction: 60 mg/m2, cyclic, on days 1, 2, 3
     Route: 042

REACTIONS (3)
  - Pneumonia [Recovering/Resolving]
  - Left ventricular dysfunction [Recovering/Resolving]
  - Heart rate increased [None]
